FAERS Safety Report 26144955 (Version 1)
Quarter: 2025Q4

REPORT INFORMATION
  Report Type: Spontaneous
  Country: US (occurrence: None)
  Receive Date: 20251211
  Receipt Date: 20251211
  Transmission Date: 20260117
  Serious: No
  Sender: APOTEX
  Company Number: US-APOTEX-2025AP033146

PATIENT
  Age: 24 Year
  Sex: Female

DRUGS (2)
  1. EMTRICITABINE\TENOFOVIR [Suspect]
     Active Substance: EMTRICITABINE\TENOFOVIR
     Indication: HIV infection
     Dosage: UNK, QD
  2. LA CAB/RPV [Concomitant]
     Indication: HIV infection
     Dosage: 600/900 MG EVERY OTHER MONTH (IE, BIMONTHLY)
     Route: 065

REACTIONS (3)
  - Vomiting [Unknown]
  - Maternal exposure during pregnancy [Unknown]
  - Nausea [Unknown]
